FAERS Safety Report 10069750 (Version 1)
Quarter: 2014Q2

REPORT INFORMATION
  Report Type: Spontaneous
  Country: US (occurrence: None)
  Receive Date: 20140409
  Receipt Date: 20140409
  Transmission Date: 20141212
  Serious: Yes (Life-Threatening, Hospitalization)
  Sender: FDA-Public Use
  Company Number: None

PATIENT
  Age: 62 Year
  Sex: Female
  Weight: 90.72 kg

DRUGS (1)
  1. CIPROFLOXACIN 500MG [Suspect]
     Indication: DIVERTICULITIS
     Dosage: 1 TAB 2XDAY TWICE DAILY TAKEN BY MOUTH
     Route: 048
     Dates: start: 20140324, end: 20140325

REACTIONS (14)
  - Vomiting [None]
  - Diarrhoea [None]
  - Migraine [None]
  - Dehydration [None]
  - Rash generalised [None]
  - Local swelling [None]
  - Swelling face [None]
  - Dyspnoea [None]
  - Dysphagia [None]
  - Pulmonary oedema [None]
  - Arthralgia [None]
  - Photosensitivity reaction [None]
  - Pyrexia [None]
  - Skin exfoliation [None]
